FAERS Safety Report 4998442-9 (Version None)
Quarter: 2006Q2

REPORT INFORMATION
  Report Type: 
  Country: None (occurrence: None)
  Receive Date: 20060510
  Receipt Date: 20060328
  Transmission Date: 20061013
  Serious: Yes (Hospitalization)
  Sender: FDA-Public Use
  Company Number: JP-JPN-A200601073

PATIENT
  Age: 69 Year
  Sex: Male
  Weight: 50 kg

DRUGS (10)
  1. PAXIL [Suspect]
     Indication: DEPRESSION
     Dosage: 10MG PER DAY
     Route: 048
     Dates: start: 20060315, end: 20060321
  2. GASTER D [Concomitant]
     Indication: GASTRIC ULCER
     Dosage: 40MG PER DAY
     Route: 048
  3. CLEANAL [Concomitant]
     Indication: CHRONIC OBSTRUCTIVE PULMONARY DISEASE
     Route: 048
  4. DASEN [Concomitant]
     Indication: CHRONIC OBSTRUCTIVE PULMONARY DISEASE
     Dosage: 15MG PER DAY
     Route: 048
  5. NAUZELIN [Concomitant]
     Indication: GASTRITIS
     Dosage: 30MG PER DAY
     Route: 048
  6. BIOFERMIN R [Concomitant]
     Dosage: 3G PER DAY
     Route: 048
     Dates: start: 20060304, end: 20060319
  7. KETAS [Concomitant]
     Dosage: 30MG PER DAY
     Route: 048
  8. FOSMICIN S [Concomitant]
     Dosage: 4G PER DAY
     Route: 042
     Dates: start: 20060304, end: 20060307
  9. SOLITA-T NO.3 [Concomitant]
     Indication: DEHYDRATION
     Route: 042
     Dates: start: 20060305, end: 20060307
  10. AMINOFLUID [Concomitant]
     Indication: DEHYDRATION
     Route: 042
     Dates: start: 20060308, end: 20060322

REACTIONS (3)
  - HYPONATRAEMIA [None]
  - INAPPROPRIATE ANTIDIURETIC HORMONE SECRETION [None]
  - MALAISE [None]
